FAERS Safety Report 5573798-7 (Version None)
Quarter: 2007Q4

REPORT INFORMATION
  Report Type: 
  Country: None (occurrence: None)
  Receive Date: 20071226
  Receipt Date: 20071214
  Transmission Date: 20080405
  Serious: Yes (Hospitalization, Other)
  Sender: FDA-Public Use
  Company Number: US-PFIZER INC-2007062492

PATIENT
  Sex: Male
  Weight: 59.9 kg

DRUGS (3)
  1. SUTENT [Suspect]
     Indication: RENAL CELL CARCINOMA STAGE UNSPECIFIED
  2. SUTENT [Suspect]
  3. COUMADIN [Concomitant]
     Route: 048

REACTIONS (2)
  - BRADYCARDIA [None]
  - GASTROINTESTINAL HAEMORRHAGE [None]
